FAERS Safety Report 4582367-7 (Version None)
Quarter: 2005Q1

REPORT INFORMATION
  Report Type: 
  Country: None (occurrence: None)
  Receive Date: 20050119
  Receipt Date: 20031209
  Transmission Date: 20050727
  Serious: Yes (Other)
  Sender: FDA-Public Use
  Company Number: US-JNJFOC-20031103765

PATIENT
  Age: 65 Year
  Sex: Female
  Weight: 64.4108 kg

DRUGS (1)
  1. DOXIL [Suspect]
     Indication: OVARIAN CANCER
     Dosage: INTRAVENOUS
     Route: 042
     Dates: start: 20030918, end: 20031016

REACTIONS (3)
  - CARBOHYDRATE ANTIGEN 125 INCREASED [None]
  - LYMPHADENOPATHY [None]
  - STOMATITIS [None]
